FAERS Safety Report 14383094 (Version 1)
Quarter: 2018Q1

REPORT INFORMATION
  Report Type: Report from Study
  Country: US (occurrence: US)
  Receive Date: 20180115
  Receipt Date: 20180115
  Transmission Date: 20180509
  Serious: Yes (Hospitalization, Other)
  Sender: FDA-Public Use
  Company Number: US-ROCHE-2002922

PATIENT
  Age: 45 Year
  Sex: Female
  Weight: 62.6 kg

DRUGS (6)
  1. ERLOTINIB [Suspect]
     Active Substance: ERLOTINIB
     Route: 048
     Dates: start: 20150910
  2. BEVACIZUMAB. [Suspect]
     Active Substance: BEVACIZUMAB
     Indication: HEREDITARY LEIOMYOMATOSIS RENAL CELL CARCINOMA
     Route: 042
     Dates: start: 20150910
  3. ERLOTINIB [Suspect]
     Active Substance: ERLOTINIB
     Indication: HEREDITARY LEIOMYOMATOSIS RENAL CELL CARCINOMA
     Dosage: AS PER PROTOCOL
     Route: 048
  4. ERLOTINIB [Suspect]
     Active Substance: ERLOTINIB
     Dosage: THERAPY INTERRUPTED: 06/SEP/2017 TO 12/SEP/2017
     Route: 048
  5. ERLOTINIB [Suspect]
     Active Substance: ERLOTINIB
     Indication: METASTATIC RENAL CELL CARCINOMA
     Dosage: THERAPY RESUMED, DOSE REDUCED
     Route: 048
     Dates: start: 20170913
  6. BEVACIZUMAB. [Suspect]
     Active Substance: BEVACIZUMAB
     Indication: METASTATIC RENAL CELL CARCINOMA

REACTIONS (5)
  - Headache [Unknown]
  - Fluid retention [Unknown]
  - Nausea [Unknown]
  - Hypertension [Recovered/Resolved]
  - Diarrhoea [Recovered/Resolved]

NARRATIVE: CASE EVENT DATE: 20170906
